FAERS Safety Report 4579488-1 (Version None)
Quarter: 2005Q1

REPORT INFORMATION
  Report Type: 
  Country: None (occurrence: None)
  Receive Date: 20050209
  Receipt Date: 20040316
  Transmission Date: 20050727
  Serious: Yes (Life-Threatening, Hospitalization)
  Sender: FDA-Public Use
  Company Number: 05-024

PATIENT
  Age: 87 Year
  Sex: Female

DRUGS (3)
  1. CAPOTEN [Suspect]
     Indication: HYPERTENSION
     Dosage: ORAL DOSE
     Route: 048
  2. SEGURIL (FUROSEMIDE 40 MG QD [Concomitant]
  3. ADIRO (ACETYLSALICILIC ACID) 100 MG QD [Concomitant]

REACTIONS (1)
  - RENAL FAILURE ACUTE [None]
